FAERS Safety Report 10663281 (Version 3)
Quarter: 2015Q2

REPORT INFORMATION
  Report Type: Spontaneous
  Country: JP (occurrence: JP)
  Receive Date: 20141218
  Receipt Date: 20150409
  Transmission Date: 20150821
  Serious: Yes (Disabling)
  Sender: FDA-Public Use
  Company Number: JP-ASTRAZENECA-2014SE63013

PATIENT
  Age: 33 Year
  Sex: Female
  Weight: 64 kg

DRUGS (13)
  1. FENTANYL. [Concomitant]
     Active Substance: FENTANYL
     Route: 008
     Dates: start: 20140812, end: 20140812
  2. BICANATE [Concomitant]
     Route: 042
     Dates: start: 20140811, end: 20140812
  3. NEO-SYNESIN [Concomitant]
     Active Substance: PHENYLEPHRINE HYDROCHLORIDE
     Route: 042
     Dates: start: 20140812, end: 20140812
  4. POPSCAINE [Concomitant]
     Active Substance: LEVOBUPIVACAINE HYDROCHLORIDE
     Dosage: 2 ML/HR
     Route: 008
     Dates: start: 20140812, end: 20140812
  5. ATONIN-O [Concomitant]
     Route: 030
     Dates: start: 20140812, end: 20140812
  6. XYLOCAINE [Concomitant]
     Active Substance: LIDOCAINE HYDROCHLORIDE
     Route: 058
     Dates: start: 20140811, end: 20140811
  7. DIPRIVAN [Concomitant]
     Active Substance: PROPOFOL
     Dosage: 2 MCG/ML
     Route: 042
     Dates: start: 20140812, end: 20140812
  8. MARCAINE [Suspect]
     Active Substance: BUPIVACAINE HYDROCHLORIDE
     Indication: SPINAL ANAESTHESIA
     Route: 029
     Dates: start: 20140811, end: 20140811
  9. VEEN-F [Concomitant]
     Route: 042
     Dates: start: 20140811, end: 20140812
  10. FLUMARIN [Concomitant]
     Active Substance: FLOMOXEF SODIUM
     Route: 042
     Dates: start: 20140811, end: 20140812
  11. ATONIN-O [Concomitant]
     Route: 042
     Dates: start: 20140812, end: 20140812
  12. XYLOCAINE WITH EPINEPHRINE [Concomitant]
     Active Substance: EPINEPHRINE BITARTRATE\LIDOCAINE HYDROCHLORIDE
     Indication: EPIDURAL ANAESTHESIA
     Dosage: MIXTURE OF XYLOCAINE INJECTION 1% AND XYLOCAINE INJECTION 2% WITH EPINEPHRINE
     Route: 008
     Dates: start: 20140811, end: 20140811
  13. FENTANYL. [Concomitant]
     Active Substance: FENTANYL
     Route: 008
     Dates: start: 20140811, end: 20140812

REACTIONS (1)
  - Cauda equina syndrome [Not Recovered/Not Resolved]

NARRATIVE: CASE EVENT DATE: 20140812
